FAERS Safety Report 8295095-1 (Version None)
Quarter: 2012Q2

REPORT INFORMATION
  Report Type: 
  Country: None (occurrence: None)
  Receive Date: 20120418
  Receipt Date: 20120403
  Transmission Date: 20120825
  Serious: Yes (Hospitalization, Disabling, Other)
  Sender: FDA-Public Use
  Company Number: NO-ROCHE-1056532

PATIENT
  Sex: Male

DRUGS (5)
  1. ALPRAZOLAM [Suspect]
     Indication: PANIC DISORDER
     Dates: end: 20100301
  2. VALIUM [Suspect]
     Indication: PANIC DISORDER
     Dates: start: 20100201, end: 20100101
  3. FLUOXETINE [Suspect]
     Indication: ANXIETY
     Dates: start: 20100201, end: 20100601
  4. ALPRAZOLAM [Suspect]
     Indication: ANXIETY
     Dosage: 0,5 MG X 4 FOR TO WEEKS. STOPPED THE DRUG, STARTED AGAIN WITH 0,25MG X 2, AND REDUCING FROM THERE.
     Dates: start: 20100201, end: 20100301
  5. INDERAL [Concomitant]
     Indication: HEART RATE INCREASED
     Dates: start: 20100401

REACTIONS (12)
  - MUSCLE SPASMS [None]
  - CONSTIPATION [None]
  - ABDOMINAL PAIN [None]
  - WITHDRAWAL SYNDROME [None]
  - FUNGAL INFECTION [None]
  - ANXIETY [None]
  - PHOTOPHOBIA [None]
  - INSOMNIA [None]
  - FATIGUE [None]
  - ASTHENIA [None]
  - ACTIVITIES OF DAILY LIVING IMPAIRED [None]
  - DYSPNOEA [None]
